FAERS Safety Report 23268453 (Version 1)
Quarter: 2023Q4

REPORT INFORMATION
  Report Type: Spontaneous
  Country: PL (occurrence: None)
  Receive Date: 20231206
  Receipt Date: 20231206
  Transmission Date: 20240110
  Serious: Yes (Hospitalization)
  Sender: FDA-Public Use
  Company Number: 2023A269714

PATIENT
  Age: 64 Year

DRUGS (12)
  1. DAPAGLIFLOZIN [Interacting]
     Active Substance: DAPAGLIFLOZIN
     Route: 048
  2. OXYCODONE [Interacting]
     Active Substance: OXYCODONE
     Indication: Arthralgia
     Dosage: 20 MG, PER DAY, TITRATED DOSE
     Route: 042
  3. MIRTAZAPINE [Interacting]
     Active Substance: MIRTAZAPINE
     Indication: Depression
     Dosage: 15 MG,AT NIGHT
  4. MIRTAZAPINE [Interacting]
     Active Substance: MIRTAZAPINE
     Indication: Insomnia
     Dosage: 15 MG,AT NIGHT
  5. METFORMIN [Interacting]
     Active Substance: METFORMIN HYDROCHLORIDE
     Dosage: 1000 MG, PER DAY
  6. METAMIZOLE [Interacting]
     Active Substance: METAMIZOLE
     Indication: Arthralgia
     Dosage: 1000 MG, 3X PER DAY ; TIME INTERVAL:
     Route: 048
  7. DEXKETOPROFEN [Interacting]
     Active Substance: DEXKETOPROFEN
     Indication: Arthralgia
     Dosage: 50 MG, 3X PER DAY ; TIME INTERVAL:
     Route: 048
  8. ACETAMINOPHEN\TRAMADOL [Interacting]
     Active Substance: ACETAMINOPHEN\TRAMADOL
     Indication: Arthralgia
     Dosage: 75/650 MG, 3X PER DAY ; TIME INTERVAL:
  9. PREGABALIN [Interacting]
     Active Substance: PREGABALIN
     Indication: Arthralgia
     Dosage: 75 MG, 2X PER DAY
  10. OMEPRAZOLE [Interacting]
     Active Substance: OMEPRAZOLE
     Indication: Gastrooesophageal reflux disease
     Dosage: 40 MG, PER DAY
  11. SERTRALINE [Interacting]
     Active Substance: SERTRALINE HYDROCHLORIDE
     Dosage: 50 MG, MG IN THE MORNING
  12. CIPROFLOXACIN [Interacting]
     Active Substance: CIPROFLOXACIN
     Indication: Urinary tract infection
     Dosage: 500 MG, 2X PER DAY
     Route: 048

REACTIONS (5)
  - Drug interaction [Unknown]
  - Medication error [Unknown]
  - Drug ineffective [Recovering/Resolving]
  - Sedation [Unknown]
  - Arthralgia [Unknown]
